FAERS Safety Report 18751253 (Version 1)
Quarter: 2021Q1

REPORT INFORMATION
  Report Type: Report from Study
  Country: IT (occurrence: IT)
  Receive Date: 20210118
  Receipt Date: 20210118
  Transmission Date: 20210419
  Serious: Yes (Other)
  Sender: FDA-Public Use
  Company Number: IT-ACCORD-214935

PATIENT
  Age: 65 Year

DRUGS (3)
  1. DOCETAXEL. [Suspect]
     Active Substance: DOCETAXEL
     Indication: SALIVARY GLAND CANCER STAGE IV
     Dosage: 1 CYCLE  TPF SCHEDULE?EVERY 21 DAYS
  2. CISPLATIN. [Suspect]
     Active Substance: CISPLATIN
     Indication: SALIVARY GLAND CANCER STAGE IV
     Dosage: TPF SCHEDULE?1 CYCLE
  3. FLUOROURACIL. [Suspect]
     Active Substance: FLUOROURACIL
     Indication: SALIVARY GLAND CANCER STAGE IV
     Dosage: FROM D1 TO D4?TPF SCHEDULE 1 CYCLE

REACTIONS (2)
  - Acute kidney injury [Recovered/Resolved]
  - Off label use [Unknown]
